FAERS Safety Report 23444728 (Version 1)
Quarter: 2024Q1

REPORT INFORMATION
  Report Type: Spontaneous
  Country: US (occurrence: US)
  Receive Date: 20240125
  Receipt Date: 20240125
  Transmission Date: 20240410
  Serious: Yes (Other)
  Sender: FDA-Public Use
  Company Number: US-BAUSCHBL-2024BNL000737

PATIENT
  Age: 81 Year
  Sex: Male
  Weight: 83.91 kg

DRUGS (1)
  1. SOOTHE XP [Suspect]
     Active Substance: LIGHT MINERAL OIL\MINERAL OIL
     Indication: Dry eye
     Dosage: 1 DROP INTO THE RIGHT EYE ONCE DAILY
     Route: 047
     Dates: start: 20240108, end: 202401

REACTIONS (3)
  - Blindness unilateral [Unknown]
  - Ocular hyperaemia [Recovered/Resolved]
  - Product residue present [Recovered/Resolved]

NARRATIVE: CASE EVENT DATE: 20240101
